FAERS Safety Report 19653541 (Version 1)
Quarter: 2021Q3

REPORT INFORMATION
  Report Type: Spontaneous
  Country: US (occurrence: US)
  Receive Date: 20210804
  Receipt Date: 20210804
  Transmission Date: 20211014
  Serious: No
  Sender: FDA-Public Use
  Company Number: US-CELGENEUS-USA-20210706324

PATIENT
  Sex: Male

DRUGS (1)
  1. POMALYST [Suspect]
     Active Substance: POMALIDOMIDE
     Indication: BRAIN NEOPLASM MALIGNANT
     Dosage: 3 MILLIGRAM
     Route: 048
     Dates: start: 20210626

REACTIONS (1)
  - Localised infection [Unknown]
